FAERS Safety Report 16822317 (Version 1)
Quarter: 2019Q3

REPORT INFORMATION
  Report Type: Report from Study
  Country: CN (occurrence: CN)
  Receive Date: 20190918
  Receipt Date: 20190918
  Transmission Date: 20191005
  Serious: Yes (Death, Other)
  Sender: FDA-Public Use
  Company Number: CN-ROCHE-2402711

PATIENT

DRUGS (16)
  1. FLUDARABINE [Suspect]
     Active Substance: FLUDARABINE PHOSPHATE
     Indication: IMMUNOSUPPRESSION
     Dosage: FOR 4 DAYS
     Route: 065
  2. MESNA. [Concomitant]
     Active Substance: MESNA
  3. MYCOPHENOLATE MOFETIL. [Suspect]
     Active Substance: MYCOPHENOLATE MOFETIL
     Indication: PROPHYLAXIS AGAINST GRAFT VERSUS HOST DISEASE
     Dosage: 30MG/(KG/DAY)
     Route: 048
  4. GANCICLOVIR. [Suspect]
     Active Substance: GANCICLOVIR
     Indication: EPSTEIN-BARR VIRAEMIA
     Dosage: AT THE ADMINISTRATION DAY OF CYCLOPHOSPHAMIDE
     Route: 065
  5. CYCLOPHOSPHAMIDE. [Suspect]
     Active Substance: CYCLOPHOSPHAMIDE
     Indication: IMMUNOSUPPRESSION
     Dosage: FOR 4 DAYS
     Route: 065
  6. FOSCARNET SODIUM. [Concomitant]
     Active Substance: FOSCARNET SODIUM
     Indication: EPSTEIN-BARR VIRAEMIA
  7. CYCLOSPORIN A [Suspect]
     Active Substance: CYCLOSPORINE
     Indication: PROPHYLAXIS AGAINST GRAFT VERSUS HOST DISEASE
     Dosage: 3MG/(KG*DAY)
     Route: 041
  8. GANCICLOVIR. [Suspect]
     Active Substance: GANCICLOVIR
     Indication: CYTOMEGALOVIRUS VIRAEMIA
  9. CYCLOSPORIN A [Suspect]
     Active Substance: CYCLOSPORINE
     Route: 048
  10. BASILIXIMAB [Suspect]
     Active Substance: BASILIXIMAB
     Indication: PROPHYLAXIS AGAINST GRAFT VERSUS HOST DISEASE
     Route: 065
  11. FOSCARNET SODIUM. [Concomitant]
     Active Substance: FOSCARNET SODIUM
     Indication: CYTOMEGALOVIRUS VIRAEMIA
  12. FOSCARNET SODIUM. [Concomitant]
     Active Substance: FOSCARNET SODIUM
     Indication: VIRAEMIA
  13. METHOTREXATE. [Suspect]
     Active Substance: METHOTREXATE
     Indication: PROPHYLAXIS AGAINST GRAFT VERSUS HOST DISEASE
     Dosage: DAY 1
     Route: 041
  14. BUSULFAN. [Suspect]
     Active Substance: BUSULFAN
     Indication: IMMUNOSUPPRESSION
     Dosage: FOR 4 DAYS
     Route: 065
  15. METHOTREXATE. [Suspect]
     Active Substance: METHOTREXATE
     Dosage: DAY 3 AND DAY 6
     Route: 041
  16. GANCICLOVIR. [Suspect]
     Active Substance: GANCICLOVIR
     Indication: VIRAEMIA

REACTIONS (16)
  - Viraemia [Recovered/Resolved]
  - Herpes zoster [Recovering/Resolving]
  - Urinary tract infection [Unknown]
  - Infection [Fatal]
  - Off label use [Unknown]
  - Intentional product use issue [Unknown]
  - Lung infection [Unknown]
  - Pulmonary tuberculosis [Recovering/Resolving]
  - Cytomegalovirus viraemia [Recovered/Resolved]
  - Peritonitis [Unknown]
  - Anal infection [Unknown]
  - Cystitis haemorrhagic [Unknown]
  - Gastrointestinal infection [Unknown]
  - Epstein-Barr viraemia [Recovered/Resolved]
  - Sepsis [Unknown]
  - Fungal infection [Unknown]
